FAERS Safety Report 9619820 (Version 1)
Quarter: 2013Q4

REPORT INFORMATION
  Report Type: Report from Study
  Country: US (occurrence: US)
  Receive Date: 20131014
  Receipt Date: 20131014
  Transmission Date: 20140711
  Serious: Yes (Other)
  Sender: FDA-Public Use
  Company Number: US-ELI_LILLY_AND_COMPANY-US201310001964

PATIENT
  Sex: Female

DRUGS (1)
  1. DULOXETINE HYDROCHLORIDE [Suspect]
     Indication: NEURALGIA
     Dosage: 60 MG, BID
     Route: 065
     Dates: end: 20131001

REACTIONS (9)
  - Suicidal ideation [Unknown]
  - Feeling of despair [Unknown]
  - Pain [Unknown]
  - Irritability [Unknown]
  - Off label use [Unknown]
  - Neck injury [Unknown]
  - Lumbar vertebral fracture [Unknown]
  - Migraine [Unknown]
  - Drug withdrawal syndrome [Unknown]
